FAERS Safety Report 12078150 (Version 1)
Quarter: 2016Q1

REPORT INFORMATION
  Report Type: Not Available
  Country: FR (occurrence: FR)
  Receive Date: 20160215
  Receipt Date: 20160215
  Transmission Date: 20160526
  Serious: Yes (Hospitalization)
  Sender: FDA-Public Use
  Company Number: FR-MUNDIPHARMA DS AND PHARMACOVIGILANCE-GBR-2016-0033937

PATIENT
  Age: 82 Year
  Sex: Male

DRUGS (17)
  1. PARACETAMOL [Concomitant]
     Active Substance: ACETAMINOPHEN
  2. ZYLORIC [Concomitant]
     Active Substance: ALLOPURINOL
  3. AMLODIPINE [Concomitant]
     Active Substance: AMLODIPINE BESYLATE
  4. FORLAX                             /00754501/ [Suspect]
     Active Substance: POLYETHYLENE GLYCOL 4000
     Indication: PRODUCT USED FOR UNKNOWN INDICATION
     Route: 065
  5. ZOPICLONE [Concomitant]
     Active Substance: ZOPICLONE
  6. AVODART [Concomitant]
     Active Substance: DUTASTERIDE
  7. HYPERIUM [Concomitant]
     Active Substance: RILMENIDINE PHOSPHATE
  8. OXYNORMORO COMPRIME ORODISPERSIBLE 5 MG [Suspect]
     Active Substance: OXYCODONE HYDROCHLORIDE
     Indication: PAIN
     Dosage: 5 MG, PRN
     Route: 048
     Dates: start: 20151217, end: 20151219
  9. DISCOTRINE [Concomitant]
     Active Substance: NITROGLYCERIN
     Dosage: 10 MG/24 HOURS
     Route: 062
  10. TRIATEC                            /00885601/ [Concomitant]
     Active Substance: RAMIPRIL
  11. OXYCONTIN [Suspect]
     Active Substance: OXYCODONE HYDROCHLORIDE
     Indication: PAIN
     Dosage: UNK
     Route: 048
     Dates: start: 20151217, end: 20151219
  12. LASILIX                            /00032601/ [Concomitant]
     Active Substance: FUROSEMIDE
  13. LYRICA [Concomitant]
     Active Substance: PREGABALIN
  14. INEXIUM                            /01479302/ [Concomitant]
     Active Substance: ESOMEPRAZOLE MAGNESIUM
  15. LIPANTHYL [Concomitant]
     Active Substance: FENOFIBRATE
  16. TRAMADOL HYDROCHLORIDE. [Suspect]
     Active Substance: TRAMADOL HYDROCHLORIDE
     Indication: PAIN
     Dosage: UNK
     Route: 048
     Dates: start: 20151217, end: 20151219
  17. PREVISCAN                          /00261401/ [Concomitant]
     Active Substance: PENTOXIFYLLINE

REACTIONS (2)
  - Confusional state [Recovered/Resolved]
  - Urinary retention [Recovered/Resolved]

NARRATIVE: CASE EVENT DATE: 20151219
